FAERS Safety Report 20085665 (Version 1)
Quarter: 2021Q4

REPORT INFORMATION
  Report Type: Spontaneous
  Country: US (occurrence: None)
  Receive Date: 20211117
  Receipt Date: 20211117
  Transmission Date: 20220303
  Serious: Yes (Hospitalization)
  Sender: FDA-Public Use
  Company Number: None

PATIENT
  Age: 86 Year
  Sex: Female

DRUGS (2)
  1. DOXYCYCLINE [Suspect]
     Active Substance: DOXYCYCLINE
  2. PREDNISONE [Suspect]
     Active Substance: PREDNISONE

REACTIONS (6)
  - Dizziness [None]
  - Heart rate irregular [None]
  - Vision blurred [None]
  - Hypotension [None]
  - Hyperhidrosis [None]
  - Chest pain [None]

NARRATIVE: CASE EVENT DATE: 20211114
